FAERS Safety Report 19438793 (Version 1)
Quarter: 2021Q2

REPORT INFORMATION
  Report Type: Spontaneous
  Country: US (occurrence: US)
  Receive Date: 20210618
  Receipt Date: 20210618
  Transmission Date: 20210717
  Serious: No
  Sender: FDA-Public Use
  Company Number: US-GW PHARMA-202106USGW02904

PATIENT

DRUGS (2)
  1. EPIDIOLEX [Suspect]
     Active Substance: CANNABIDIOL
     Indication: TUBEROUS SCLEROSIS COMPLEX
     Dosage: 300 MILLIGRAM
     Route: 048
     Dates: start: 202101, end: 2021
  2. EPIDIOLEX [Suspect]
     Active Substance: CANNABIDIOL
     Indication: BENIGN CARDIAC NEOPLASM

REACTIONS (3)
  - Abnormal behaviour [Unknown]
  - Crying [Unknown]
  - Mood altered [Unknown]

NARRATIVE: CASE EVENT DATE: 2021
